FAERS Safety Report 18293470 (Version 3)
Quarter: 2021Q4

REPORT INFORMATION
  Report Type: Spontaneous
  Country: US (occurrence: US)
  Receive Date: 20200921
  Receipt Date: 20211221
  Transmission Date: 20220304
  Serious: No
  Sender: FDA-Public Use
  Company Number: US-ACORDA-ACO_165517_2020

PATIENT
  Sex: Male
  Weight: 90.703 kg

DRUGS (2)
  1. INBRIJA [Suspect]
     Active Substance: LEVODOPA
     Indication: On and off phenomenon
     Dosage: 2 CAPSULES (84 MG), AS NEEDED (UP TO 5 TIMES PER DAY)
     Dates: start: 2020
  2. INBRIJA [Suspect]
     Active Substance: LEVODOPA
     Indication: Parkinson^s disease

REACTIONS (7)
  - Device occlusion [Unknown]
  - Device issue [Unknown]
  - Product quality issue [Unknown]
  - Product physical issue [Unknown]
  - Poor venous access [Unknown]
  - Cough [Unknown]
  - Drug ineffective [Unknown]
